FAERS Safety Report 4472619-3 (Version None)
Quarter: 2004Q4

REPORT INFORMATION
  Report Type: 
  Country: None (occurrence: None)
  Receive Date: 20041008
  Receipt Date: 20040928
  Transmission Date: 20050328
  Serious: No
  Sender: FDA-Public Use
  Company Number: 2004SE05383

PATIENT
  Age: 64 Year
  Sex: Female
  Weight: 58 kg

DRUGS (10)
  1. AMIAS [Suspect]
     Indication: CARDIAC FAILURE
     Dates: start: 20040621, end: 20040907
  2. DIGOXIN [Concomitant]
  3. SPIRONOLACTONE [Concomitant]
  4. LANSOPRAZOLE [Concomitant]
  5. ATORVASTATIN CALCIUM [Concomitant]
  6. CARVEDILOL [Concomitant]
  7. FUROSEMIDE [Concomitant]
  8. INSULIN INITARD NORDISK [Concomitant]
  9. PERINDOPRIL TERT-BUTYLAMINE SALT [Concomitant]
  10. CLOPIDOGREL [Concomitant]

REACTIONS (2)
  - INFLAMMATION [None]
  - POLYMYALGIA RHEUMATICA [None]
